FAERS Safety Report 7914576-0 (Version None)
Quarter: 2011Q4

REPORT INFORMATION
  Report Type: 
  Country: None (occurrence: None)
  Receive Date: 20111115
  Receipt Date: 20111103
  Transmission Date: 20120403
  Serious: Yes (Hospitalization, Other)
  Sender: FDA-Public Use
  Company Number: PHHO2011FR14675

PATIENT
  Sex: Female
  Weight: 67 kg

DRUGS (8)
  1. INVANZ [Concomitant]
  2. PREDNISONE TAB [Concomitant]
     Indication: RENAL TRANSPLANT
     Dosage: 20 MG, UNK
     Route: 048
     Dates: start: 20110731
  3. NEORAL [Suspect]
     Dosage: 100+75
     Route: 048
     Dates: start: 20110825
  4. NEORAL [Suspect]
     Dosage: 75+75
     Route: 048
     Dates: start: 20110826
  5. VALGANCICLOVIR [Concomitant]
  6. NEORAL [Suspect]
     Indication: RENAL TRANSPLANT
     Dosage: 250 MG, UNK
     Route: 048
     Dates: start: 20110802
  7. MYCOPHENOLATE MOFETIL (CELLCEPT) [Concomitant]
     Indication: RENAL TRANSPLANT
     Dosage: 2 G, UNK
     Route: 048
     Dates: start: 20110730
  8. BACTRIM [Concomitant]

REACTIONS (6)
  - HYPONATRAEMIA [None]
  - RENAL FAILURE CHRONIC [None]
  - COMPLICATIONS OF TRANSPLANTED KIDNEY [None]
  - MAJOR DEPRESSION [None]
  - DELIRIUM [None]
  - HALLUCINATION [None]
